FAERS Safety Report 15936079 (Version 1)
Quarter: 2019Q1

REPORT INFORMATION
  Report Type: Spontaneous
  Country: PT (occurrence: PT)
  Receive Date: 20190208
  Receipt Date: 20190208
  Transmission Date: 20190417
  Serious: Yes (Death, Hospitalization, Other)
  Sender: FDA-Public Use
  Company Number: PT-CELLTRION INC.-2019PT017653

PATIENT

DRUGS (3)
  1. AMOXICILLIN/CLAVULANIC ACID [Suspect]
     Active Substance: AMOXICILLIN\CLAVULANIC ACID
     Indication: NOCARDIOSIS
     Dosage: 2 G, Q8HR FORMULATION UNKNOWN
     Route: 065
  2. RITUXIMAB (UNKNOWN) [Suspect]
     Active Substance: RITUXIMAB
     Indication: CHRONIC LYMPHOCYTIC LEUKAEMIA
     Dosage: UNK UNK, CYCLIC (4 CYCLES) FORMULATION UNKNOWN
     Route: 065
  3. BENDAMUSTINE [Suspect]
     Active Substance: BENDAMUSTINE
     Indication: CHRONIC LYMPHOCYTIC LEUKAEMIA
     Dosage: UNK UNK, CYCLIC (4 CYCLES)
     Route: 042

REACTIONS (7)
  - Infection [Unknown]
  - Nocardiosis [Unknown]
  - Pleural effusion [Unknown]
  - Drug ineffective [Unknown]
  - Pneumonia [Unknown]
  - Haematotoxicity [Unknown]
  - Disease progression [Fatal]

NARRATIVE: CASE EVENT DATE: 201608
